FAERS Safety Report 4501203-8 (Version None)
Quarter: 2004Q3

REPORT INFORMATION
  Report Type: 
  Country: None (occurrence: None)
  Receive Date: 20040927
  Receipt Date: 20040816
  Transmission Date: 20050211
  Serious: No
  Sender: FDA-Public Use
  Company Number: USA040875513

PATIENT
  Age: 8 Year
  Sex: Female
  Weight: 28 kg

DRUGS (2)
  1. STRATTERA [Suspect]
     Indication: ATTENTION DEFICIT/HYPERACTIVITY DISORDER
     Dosage: 40 MG
     Dates: start: 20040601
  2. CLONIDINE [Concomitant]

REACTIONS (2)
  - PRESCRIBED OVERDOSE [None]
  - PSYCHOMOTOR HYPERACTIVITY [None]
